FAERS Safety Report 13942635 (Version 2)
Quarter: 2017Q4

REPORT INFORMATION
  Report Type: Spontaneous
  Country: US (occurrence: US)
  Receive Date: 20170906
  Receipt Date: 20171003
  Transmission Date: 20180320
  Serious: Yes (Other)
  Sender: FDA-Public Use
  Company Number: US-JAZZ-2017-US-010010

PATIENT
  Sex: Female

DRUGS (23)
  1. XYREM [Suspect]
     Active Substance: SODIUM OXYBATE
     Dosage: 2.25G, QD, SECOND DOSE
     Route: 048
     Dates: start: 201602, end: 2016
  2. FLONASE                            /00908302/ [Concomitant]
     Active Substance: MOMETASONE FUROATE
  3. NAPROXEN. [Concomitant]
     Active Substance: NAPROXEN
  4. ASMANEX [Concomitant]
     Active Substance: MOMETASONE FUROATE
  5. CLONAZEPAM. [Concomitant]
     Active Substance: CLONAZEPAM
  6. NICOTINE. [Concomitant]
     Active Substance: NICOTINE
  7. TRIAMTERENE AND HYDROCHLOROTHIAZIDE [Concomitant]
     Active Substance: HYDROCHLOROTHIAZIDE\TRIAMTERENE
  8. ALBUTEROL SULFATE. [Concomitant]
     Active Substance: ALBUTEROL SULFATE
  9. CYANOCOBALAMIN. [Concomitant]
     Active Substance: CYANOCOBALAMIN
  10. CYMBALTA [Concomitant]
     Active Substance: DULOXETINE HYDROCHLORIDE
  11. MIRAPEX [Concomitant]
     Active Substance: PRAMIPEXOLE DIHYDROCHLORIDE
  12. XYREM [Suspect]
     Active Substance: SODIUM OXYBATE
     Indication: CATAPLEXY
     Dosage: 2.25G, QD, FIRST DOSE
     Route: 048
     Dates: start: 201602, end: 2016
  13. FLOVENT HFA [Concomitant]
     Active Substance: FLUTICASONE PROPIONATE
  14. BUDESONIDE. [Concomitant]
     Active Substance: BUDESONIDE
  15. GABAPENTIN. [Concomitant]
     Active Substance: GABAPENTIN
  16. PULMICORT TURBUHALER [Concomitant]
     Active Substance: BUDESONIDE
  17. VENTOLIN HFA [Concomitant]
     Active Substance: ALBUTEROL SULFATE
  18. NUVIGIL [Concomitant]
     Active Substance: ARMODAFINIL
  19. PERCOCET [Concomitant]
     Active Substance: ACETAMINOPHEN\OXYCODONE HYDROCHLORIDE
  20. XYREM [Suspect]
     Active Substance: SODIUM OXYBATE
     Indication: NARCOLEPSY
     Dosage: 2.25G, BID
     Route: 048
     Dates: start: 201601, end: 201602
  21. SINGULAIR [Concomitant]
     Active Substance: MONTELUKAST SODIUM
  22. VALIUM [Concomitant]
     Active Substance: DIAZEPAM
  23. ZYRTEC [Concomitant]
     Active Substance: CETIRIZINE HYDROCHLORIDE

REACTIONS (6)
  - Nausea [Unknown]
  - Somnambulism [Not Recovered/Not Resolved]
  - Sinusitis [Unknown]
  - Hypertension [Recovering/Resolving]
  - Abdominal discomfort [Unknown]
  - Back disorder [Not Recovered/Not Resolved]

NARRATIVE: CASE EVENT DATE: 2017
